FAERS Safety Report 4768722-0 (Version None)
Quarter: 2005Q3

REPORT INFORMATION
  Report Type: 
  Country: None (occurrence: None)
  Receive Date: 20050914
  Receipt Date: 20050906
  Transmission Date: 20060218
  Serious: Yes (Other)
  Sender: FDA-Public Use
  Company Number: 200417880US

PATIENT
  Age: 34 Year
  Sex: Female

DRUGS (2)
  1. AVANDIA [Suspect]
     Route: 065
  2. AMARYL [Suspect]
     Route: 065

REACTIONS (3)
  - DIABETES MELLITUS NON-INSULIN-DEPENDENT [None]
  - HYPOGLYCAEMIA [None]
  - MEDICATION ERROR [None]
